FAERS Safety Report 8782122 (Version 1)
Quarter: 2012Q4

REPORT INFORMATION
  Report Type: 
  Country: US (occurrence: US)
  Receive Date: 20120913
  Receipt Date: 20120913
  Transmission Date: 20130627
  Serious: No
  Sender: FDA-Public Use
  Company Number: US-VERTEX PHARMACEUTICAL INC.-2012-020075

PATIENT
  Sex: Female

DRUGS (5)
  1. VX-950 [Suspect]
     Indication: HEPATITIS C
     Dosage: 750 mg, tid
     Route: 048
     Dates: start: 20120123
  2. RIBASPHERE [Concomitant]
     Indication: HEPATITIS C
     Dosage: 1000 mg, qd
     Route: 048
     Dates: start: 20120123
  3. PEGASYS [Concomitant]
     Indication: HEPATITIS C
     Dosage: 180 ?g,
     Route: 058
     Dates: start: 20120123
  4. EFFEXOR XR [Concomitant]
     Dosage: 75 mg, qd
     Route: 048
     Dates: start: 20120124
  5. PROCRIT                            /00909301/ [Concomitant]
     Dosage: 40000 ut,
     Route: 058
     Dates: start: 20120404

REACTIONS (1)
  - Drug ineffective [Unknown]
